FAERS Safety Report 5528895-9 (Version None)
Quarter: 2007Q4

REPORT INFORMATION
  Report Type: 
  Country: None (occurrence: None)
  Receive Date: 20071126
  Receipt Date: 20071030
  Transmission Date: 20080405
  Serious: Yes (Disabling, Other)
  Sender: FDA-Public Use
  Company Number: DEPFP-S-20070041

PATIENT
  Age: 81 Year
  Sex: Female

DRUGS (6)
  1. NAVELBINE [Suspect]
     Indication: BREAST CANCER METASTATIC
     Dosage: 49 MG 1 X WK IV
     Route: 042
     Dates: start: 20061215, end: 20070315
  2. NAVELBINE [Suspect]
     Indication: BREAST CANCER METASTATIC
     Dosage: 41 MG 1 X WK IV
     Route: 042
     Dates: start: 20070620, end: 20070912
  3. NOVAMIN [Concomitant]
  4. OSSOFORTIN [Concomitant]
  5. FENTANYL [Concomitant]
  6. PAMIDRONATE DISODIUM [Concomitant]

REACTIONS (2)
  - BLINDNESS [None]
  - OPTIC ATROPHY [None]
